FAERS Safety Report 23542403 (Version 1)
Quarter: 2024Q1

REPORT INFORMATION
  Report Type: Other
  Country: US (occurrence: None)
  Receive Date: 20240220
  Receipt Date: 20240220
  Transmission Date: 20240409
  Serious: Yes (Other)
  Sender: FDA-Public Use
  Company Number: US-ROCHE-3254792

PATIENT
  Age: 58 Year
  Sex: Male
  Weight: 86.26 kg

DRUGS (9)
  1. RITUXAN [Suspect]
     Active Substance: RITUXIMAB
     Indication: Systemic lupus erythematosus
     Dosage: DAY 1 AND DAY 15 REPEAT EVERY 6 MONTHS
     Route: 041
     Dates: start: 202211
  2. RITUXAN [Suspect]
     Active Substance: RITUXIMAB
     Indication: Myositis
  3. CELLCEPT [Suspect]
     Active Substance: MYCOPHENOLATE MOFETIL
     Indication: Systemic lupus erythematosus
     Dosage: 2 IN THE MORNING; 2 IN THE AFTERNOON
     Route: 065
  4. METFORMIN [Suspect]
     Active Substance: METFORMIN HYDROCHLORIDE
     Indication: Product used for unknown indication
     Dosage: ONCE IN THE MORNING; ONCE IN THE AFTERNOON
     Route: 065
  5. PREDNISONE [Concomitant]
     Active Substance: PREDNISONE
  6. CELLCEPT [Concomitant]
     Active Substance: MYCOPHENOLATE MOFETIL
  7. LOSARTAN [Concomitant]
     Active Substance: LOSARTAN
  8. FUROSEMIDE [Concomitant]
     Active Substance: FUROSEMIDE
  9. PROTEINEX [Concomitant]

REACTIONS (6)
  - Off label use [Unknown]
  - Blindness [Unknown]
  - Weight decreased [Recovered/Resolved]
  - Tooth loss [Unknown]
  - Loose tooth [Unknown]
  - Visual impairment [Unknown]

NARRATIVE: CASE EVENT DATE: 20221101
